FAERS Safety Report 9463731 (Version 1)
Quarter: 2013Q3

REPORT INFORMATION
  Report Type: Spontaneous
  Country: GB (occurrence: GB)
  Receive Date: 20130819
  Receipt Date: 20130819
  Transmission Date: 20140515
  Serious: Yes (Other)
  Sender: FDA-Public Use
  Company Number: PHFR2013GB004756

PATIENT
  Sex: Male

DRUGS (9)
  1. ZOLEDRONATE [Suspect]
     Indication: OSTEOPOROSIS
     Dosage: 5 MG
     Route: 042
     Dates: start: 201204
  2. PREDNISOLONE [Concomitant]
     Dosage: UNK
  3. CLOPIDOGREL [Concomitant]
     Dosage: UNK
  4. LOSARTAN [Concomitant]
     Dosage: UNK
  5. INALER [Concomitant]
     Dosage: UNK
  6. SOLIFENACIN [Concomitant]
     Dosage: UNK
  7. CALCICHEW D3 [Concomitant]
     Dosage: UNK
  8. PARACETAMOL [Concomitant]
     Dosage: UNK
  9. OMEPRAZOLE [Concomitant]
     Dosage: UNK

REACTIONS (1)
  - Mouth haemorrhage [Recovered/Resolved]
